FAERS Safety Report 8009705-7 (Version None)
Quarter: 2011Q4

REPORT INFORMATION
  Report Type: 
  Country: None (occurrence: None)
  Receive Date: 20111228
  Receipt Date: 20111215
  Transmission Date: 20120403
  Serious: No
  Sender: FDA-Public Use
  Company Number: US-BIOGENIDEC-2011BI047840

PATIENT
  Age: 55 Year
  Sex: Female

DRUGS (1)
  1. TYSABRI [Suspect]
     Indication: MULTIPLE SCLEROSIS
     Route: 042
     Dates: start: 20080918

REACTIONS (13)
  - CHILLS [None]
  - CONFUSIONAL STATE [None]
  - MULTIPLE SCLEROSIS RELAPSE [None]
  - BACTERIAL INFECTION [None]
  - IMMUNE SYSTEM DISORDER [None]
  - FATIGUE [None]
  - FUNGAL INFECTION [None]
  - DIPLOPIA [None]
  - VIRAL INFECTION [None]
  - STOMATITIS [None]
  - HEADACHE [None]
  - NAUSEA [None]
  - HAEMANGIOMA [None]
